FAERS Safety Report 13647730 (Version 4)
Quarter: 2018Q1

REPORT INFORMATION
  Report Type: Report from Study
  Country: BR (occurrence: BR)
  Receive Date: 20170613
  Receipt Date: 20180326
  Transmission Date: 20180508
  Serious: Yes (Hospitalization)
  Sender: FDA-Public Use
  Company Number: BR-SA-2017SA102085

PATIENT
  Age: 26 Year
  Sex: Male
  Weight: 73 kg

DRUGS (2)
  1. LEMTRADA [Suspect]
     Active Substance: ALEMTUZUMAB
     Indication: MULTIPLE SCLEROSIS
     Dosage: DOSE: 1 VIAL PER INFUSION?DOSE = 5
     Route: 041
     Dates: start: 20170405
  2. ACICLOVIR [Concomitant]
     Active Substance: ACYCLOVIR
     Indication: PROPHYLAXIS
     Dates: start: 2017

REACTIONS (8)
  - Pain [Recovered/Resolved]
  - Wound [Recovered/Resolved]
  - Immunodeficiency [Recovered/Resolved]
  - White blood cell count decreased [Unknown]
  - Herpes zoster [Recovered/Resolved]
  - Gait disturbance [Unknown]
  - Ear pain [Recovered/Resolved]
  - Meningitis [Recovered/Resolved]

NARRATIVE: CASE EVENT DATE: 20170508
